FAERS Safety Report 22008264 (Version 1)
Quarter: 2023Q1

REPORT INFORMATION
  Report Type: Spontaneous
  Country: CN (occurrence: None)
  Receive Date: 20230219
  Receipt Date: 20230219
  Transmission Date: 20230418
  Serious: Yes (Other)
  Sender: FDA-Public Use
  Company Number: 2023A034998

PATIENT
  Age: 21910 Day
  Sex: Male
  Weight: 76 kg

DRUGS (1)
  1. ROSUVASTATIN CALCIUM [Suspect]
     Active Substance: ROSUVASTATIN CALCIUM
     Indication: Acute myocardial infarction
     Route: 048
     Dates: start: 20230131, end: 20230207

REACTIONS (1)
  - Drug-induced liver injury [Unknown]

NARRATIVE: CASE EVENT DATE: 20230207
